FAERS Safety Report 16808126 (Version 4)
Quarter: 2019Q4

REPORT INFORMATION
  Report Type: Spontaneous
  Country: JP (occurrence: JP)
  Receive Date: 20190916
  Receipt Date: 20191031
  Transmission Date: 20200122
  Serious: Yes (Death)
  Sender: FDA-Public Use
  Company Number: JP-TEVA-2019-JP-005943J

PATIENT
  Sex: Male
  Weight: 72 kg

DRUGS (8)
  1. LOXOPROFEN [Concomitant]
     Active Substance: LOXOPROFEN
     Indication: BACK PAIN
     Route: 048
     Dates: start: 20190906, end: 20190907
  2. DANTRIUM [Concomitant]
     Active Substance: DANTROLENE SODIUM
     Route: 042
  3. CALONAL [Concomitant]
     Active Substance: ACETAMINOPHEN
     Indication: BACK PAIN
     Dosage: 1500 MILLIGRAM DAILY;
     Route: 048
     Dates: start: 20190905, end: 20190906
  4. SOSEGON [Concomitant]
     Active Substance: PENTAZOCINE
     Indication: BACK PAIN
     Route: 058
     Dates: start: 20190912
  5. PREDONINE [Suspect]
     Active Substance: PREDNISOLONE
     Indication: POLYMYALGIA RHEUMATICA
     Dosage: 20 MILLIGRAM DAILY;
     Route: 048
     Dates: start: 20190911, end: 20190912
  6. CALCICOL [Concomitant]
     Active Substance: CALCIUM GLUCONATE
     Route: 042
  7. ADEFURONIC ZUPO 25 [Suspect]
     Active Substance: DICLOFENAC
     Indication: BACK PAIN
     Route: 054
     Dates: start: 20190912, end: 20190912
  8. REBAMIPIDE [Concomitant]
     Active Substance: REBAMIPIDE
     Route: 048
     Dates: start: 20190906

REACTIONS (8)
  - Blood pressure decreased [Fatal]
  - Cardiac arrest [Fatal]
  - Respiratory arrest [Fatal]
  - Depressed level of consciousness [Fatal]
  - Ventricular extrasystoles [Fatal]
  - Bradycardia [Fatal]
  - Rhabdomyolysis [Fatal]
  - Atrial fibrillation [Fatal]
